FAERS Safety Report 24006758 (Version 1)
Quarter: 2024Q2

REPORT INFORMATION
  Report Type: Spontaneous
  Country: US (occurrence: US)
  Receive Date: 20240624
  Receipt Date: 20240624
  Transmission Date: 20240715
  Serious: Yes (Other)
  Sender: FDA-Public Use
  Company Number: US-BAYER-2024A089926

PATIENT
  Age: 50 Year
  Sex: Male

DRUGS (4)
  1. ASPIRIN [Suspect]
     Active Substance: ASPIRIN
     Dosage: UNK
  2. RIVAROXABAN [Suspect]
     Active Substance: RIVAROXABAN
     Dosage: UNK
  3. HEPARIN [Concomitant]
     Active Substance: HEPARIN SODIUM
  4. HUMAN PLASMA [Concomitant]
     Active Substance: HUMAN PLASMA

REACTIONS (4)
  - Adrenal haemorrhage [None]
  - Haematochezia [None]
  - Haematuria [None]
  - Drug ineffective [None]
